FAERS Safety Report 7022218-4 (Version None)
Quarter: 2010Q3

REPORT INFORMATION
  Report Type: 
  Country: None (occurrence: None)
  Receive Date: 20100930
  Receipt Date: 20100917
  Transmission Date: 20110219
  Serious: Yes (Hospitalization)
  Sender: FDA-Public Use
  Company Number: FR-ELI_LILLY_AND_COMPANY-FR201004007943

PATIENT
  Sex: Female

DRUGS (4)
  1. PROZAC [Suspect]
     Indication: MAJOR DEPRESSION
     Dosage: 40 MG, DAILY (1/D)
     Route: 048
     Dates: start: 20090301, end: 20100421
  2. PROZAC [Suspect]
     Dosage: 20 MG, DAILY (1/D)
     Route: 048
  3. DOLI RHUME [Concomitant]
     Indication: NASOPHARYNGITIS
     Dosage: UNK, UNK
     Route: 048
     Dates: start: 20100413, end: 20100416
  4. NOCTAMIDE [Concomitant]
     Indication: INSOMNIA
     Dosage: 0.5 MG, DAILY (1/D)
     Route: 048

REACTIONS (10)
  - ASTHENIA [None]
  - BALANCE DISORDER [None]
  - CONFUSIONAL STATE [None]
  - DRUG INTERACTION [None]
  - ENCEPHALOPATHY [None]
  - HEADACHE [None]
  - HYPERREFLEXIA [None]
  - MYOCLONUS [None]
  - PHOTOPHOBIA [None]
  - TREMOR [None]
